FAERS Safety Report 6076990-0 (Version None)
Quarter: 2009Q1

REPORT INFORMATION
  Report Type: 
  Country: None (occurrence: None)
  Receive Date: 20090213
  Receipt Date: 20090206
  Transmission Date: 20090719
  Serious: Yes (Hospitalization, Other)
  Sender: FDA-Public Use
  Company Number: US-BAYER-200840439NA

PATIENT
  Age: 37 Year
  Sex: Female
  Weight: 140 kg

DRUGS (1)
  1. MIRENA [Suspect]
     Indication: CONTRACEPTION
     Route: 015
     Dates: start: 20080729, end: 20080814

REACTIONS (6)
  - ABDOMINAL PAIN LOWER [None]
  - CONSTIPATION [None]
  - DECREASED APPETITE [None]
  - NAUSEA [None]
  - PELVIC INFLAMMATORY DISEASE [None]
  - TUBO-OVARIAN ABSCESS [None]
